FAERS Safety Report 23179061 (Version 2)
Quarter: 2023Q4

REPORT INFORMATION
  Report Type: Spontaneous
  Country: FR (occurrence: FR)
  Receive Date: 20231113
  Receipt Date: 20231129
  Transmission Date: 20240109
  Serious: Yes (Hospitalization, Other)
  Sender: FDA-Public Use
  Company Number: None

PATIENT
  Age: 60 Year
  Sex: Male
  Weight: 82 kg

DRUGS (5)
  1. NIPENT [Suspect]
     Active Substance: PENTOSTATIN
     Indication: Hairy cell leukaemia
     Dosage: 8 MG, SINGLE
     Route: 042
     Dates: start: 20230818, end: 20230818
  2. NIPENT [Suspect]
     Active Substance: PENTOSTATIN
     Dosage: 8 MG, SINGLE
     Route: 042
     Dates: start: 20230914, end: 20230914
  3. POSACONAZOLE [Concomitant]
     Active Substance: POSACONAZOLE
     Dosage: 300 MG, 1X/DAY
  4. ATOVAQUONE [Concomitant]
     Active Substance: ATOVAQUONE
     Dosage: 2 DF, 1X/DAY
  5. VALACYCLOVIR HYDROCHLORIDE [Concomitant]
     Active Substance: VALACYCLOVIR HYDROCHLORIDE
     Dosage: 1000 MG, 1X/DAY

REACTIONS (2)
  - Autoimmune haemolytic anaemia [Recovering/Resolving]
  - Leukopenia [Not Recovered/Not Resolved]

NARRATIVE: CASE EVENT DATE: 20230829
